FAERS Safety Report 17495988 (Version 3)
Quarter: 2020Q3

REPORT INFORMATION
  Report Type: Spontaneous
  Country: US (occurrence: US)
  Receive Date: 20200303
  Receipt Date: 20200922
  Transmission Date: 20201102
  Serious: Yes (Other)
  Sender: FDA-Public Use
  Company Number: US-ASTRAZENECA-2020SE29848

PATIENT
  Age: 23369 Day
  Sex: Female
  Weight: 120.2 kg

DRUGS (51)
  1. NEXIUM [Suspect]
     Active Substance: ESOMEPRAZOLE MAGNESIUM
     Indication: GASTROOESOPHAGEAL REFLUX DISEASE
     Route: 048
     Dates: start: 20150417
  2. NORVASC [Concomitant]
     Active Substance: AMLODIPINE BESYLATE
  3. MELOXICAM. [Concomitant]
     Active Substance: MELOXICAM
  4. FLONASE [Concomitant]
     Active Substance: FLUTICASONE PROPIONATE
  5. RANITIDINE. [Concomitant]
     Active Substance: RANITIDINE
  6. TOPAMAX [Concomitant]
     Active Substance: TOPIRAMATE
  7. NEXIUM [Suspect]
     Active Substance: ESOMEPRAZOLE MAGNESIUM
     Indication: GASTROOESOPHAGEAL REFLUX DISEASE
     Route: 048
     Dates: start: 201001, end: 201504
  8. ULTRA [Concomitant]
     Active Substance: SULFACETAMIDE SODIUM
  9. ANTARA [Concomitant]
     Active Substance: FENOFIBRATE
  10. NEXIUM [Suspect]
     Active Substance: ESOMEPRAZOLE MAGNESIUM
     Indication: GASTROOESOPHAGEAL REFLUX DISEASE
     Route: 048
     Dates: start: 201001, end: 201509
  11. PROVENTIL [Concomitant]
     Active Substance: ALBUTEROL
  12. SYMBICORT [Concomitant]
     Active Substance: BUDESONIDE\FORMOTEROL FUMARATE DIHYDRATE
  13. CLONAZEPAM. [Concomitant]
     Active Substance: CLONAZEPAM
  14. BENZTROPINE. [Concomitant]
     Active Substance: BENZTROPINE
  15. CYMBALTA [Concomitant]
     Active Substance: DULOXETINE HYDROCHLORIDE
  16. LEVOTHYROXINE. [Concomitant]
     Active Substance: LEVOTHYROXINE
  17. CLINDAMYCIN. [Concomitant]
     Active Substance: CLINDAMYCIN
  18. PROMETHAZINE [Concomitant]
     Active Substance: PROMETHAZINE HYDROCHLORIDE
  19. MICROLET [Concomitant]
  20. DICLOFENAC SODIUM. [Concomitant]
     Active Substance: DICLOFENAC SODIUM
  21. NEXIUM [Suspect]
     Active Substance: ESOMEPRAZOLE MAGNESIUM
     Indication: GASTROOESOPHAGEAL REFLUX DISEASE
     Dosage: GENERIC
     Route: 048
  22. COZAAR [Concomitant]
     Active Substance: LOSARTAN POTASSIUM
  23. AMOXICILLIN. [Concomitant]
     Active Substance: AMOXICILLIN
  24. SERTRALINE [Concomitant]
     Active Substance: SERTRALINE HYDROCHLORIDE
  25. METOPROLOL. [Concomitant]
     Active Substance: METOPROLOL
  26. CHLORHEXIDINE [Concomitant]
     Active Substance: CHLORHEXIDINE
  27. DOXYCYCLINE. [Concomitant]
     Active Substance: DOXYCYCLINE
  28. ALBUTEROL. [Concomitant]
     Active Substance: ALBUTEROL
  29. HUMULIN NOS [Concomitant]
     Active Substance: INSULIN HUMAN
  30. HYDROCODON [Concomitant]
     Active Substance: HYDROCODONE
  31. SUCRALFATE. [Concomitant]
     Active Substance: SUCRALFATE
  32. NOVOLIN NOS [Concomitant]
     Active Substance: INSULIN HUMAN
  33. KETOCONAZOLE. [Concomitant]
     Active Substance: KETOCONAZOLE
  34. SEROQUEL [Concomitant]
     Active Substance: QUETIAPINE FUMARATE
  35. LITHIUM. [Concomitant]
     Active Substance: LITHIUM
  36. ONDANSETRON [Concomitant]
     Active Substance: ONDANSETRON
  37. NORTRIPTYLINE [Concomitant]
     Active Substance: NORTRIPTYLINE
  38. TOPAMAX [Concomitant]
     Active Substance: TOPIRAMATE
  39. LANTUS [Concomitant]
     Active Substance: INSULIN GLARGINE
  40. HYDROXYZINE [Concomitant]
     Active Substance: HYDROXYZINE HYDROCHLORIDE
  41. WALGREENS [Concomitant]
  42. MUCINEX [Concomitant]
     Active Substance: GUAIFENESIN
     Dates: start: 20120315
  43. ZOFRAN [Concomitant]
     Active Substance: ONDANSETRON HYDROCHLORIDE
  44. ZOLOFT [Concomitant]
     Active Substance: SERTRALINE HYDROCHLORIDE
  45. VANCOMYCIN [Concomitant]
     Active Substance: VANCOMYCIN
  46. NEXIUM [Suspect]
     Active Substance: ESOMEPRAZOLE MAGNESIUM
     Indication: GASTROOESOPHAGEAL REFLUX DISEASE
     Route: 048
     Dates: start: 20100121
  47. PENICILLIN [Concomitant]
     Active Substance: PENICILLIN
  48. JANUMET [Concomitant]
     Active Substance: METFORMIN HYDROCHLORIDE\SITAGLIPTIN PHOSPHATE
  49. CRESTOR [Concomitant]
     Active Substance: ROSUVASTATIN CALCIUM
     Indication: BLOOD CHOLESTEROL
     Dates: start: 2015, end: 2016
  50. MECLIZINE [Concomitant]
     Active Substance: MECLIZINE HYDROCHLORIDE
  51. PERIDEX [Concomitant]
     Active Substance: CHLORHEXIDINE GLUCONATE

REACTIONS (1)
  - Chronic kidney disease [Not Recovered/Not Resolved]

NARRATIVE: CASE EVENT DATE: 20150929
